FAERS Safety Report 6128263-5 (Version None)
Quarter: 2009Q1

REPORT INFORMATION
  Report Type: 
  Country: None (occurrence: None)
  Receive Date: 20090319
  Receipt Date: 20090303
  Transmission Date: 20090719
  Serious: Yes (Other)
  Sender: FDA-Public Use
  Company Number: 8043892

PATIENT
  Age: 24 Year
  Sex: Female

DRUGS (5)
  1. PREDNISOLONE [Suspect]
     Indication: SYSTEMIC LUPUS ERYTHEMATOSUS
  2. CYCLOPHOSPHAMIDE [Suspect]
     Indication: SYSTEMIC LUPUS ERYTHEMATOSUS
     Dates: start: 19971201
  3. METHYLPREDNISOLONE 4MG TAB [Suspect]
     Indication: SYSTEMIC LUPUS ERYTHEMATOSUS
  4. AZATHIOPRINE [Suspect]
     Indication: SYSTEMIC LUPUS ERYTHEMATOSUS
     Dosage: 100 MG
  5. HYDROXYCHLOROQUINE [Suspect]
     Dosage: 400 MG

REACTIONS (6)
  - BACTERIAL INFECTION [None]
  - BONE SARCOMA [None]
  - HYDRONEPHROSIS [None]
  - SYSTEMIC LUPUS ERYTHEMATOSUS [None]
  - URETERIC DILATATION [None]
  - URINARY TRACT INFECTION [None]
